FAERS Safety Report 17414986 (Version 3)
Quarter: 2020Q2

REPORT INFORMATION
  Report Type: Spontaneous
  Country: JP (occurrence: JP)
  Receive Date: 20200213
  Receipt Date: 20200506
  Transmission Date: 20200713
  Serious: Yes (Hospitalization, Other)
  Sender: FDA-Public Use
  Company Number: JP-ELI_LILLY_AND_COMPANY-JP202002003527

PATIENT
  Age: 60 Year
  Sex: Male

DRUGS (15)
  1. GEMCITABINE HYDROCHLORIDE. [Suspect]
     Active Substance: GEMCITABINE HYDROCHLORIDE
     Dosage: 750 MG/M2, OTHER
     Route: 042
  2. GEMCITABINE HYDROCHLORIDE. [Suspect]
     Active Substance: GEMCITABINE HYDROCHLORIDE
     Dosage: 750 MG/M2, OTHER
     Route: 042
     Dates: start: 20200415
  3. CISPLATIN. [Suspect]
     Active Substance: CISPLATIN
     Dosage: 45 MG/M2, OTHER
     Route: 042
  4. PORTRAZZA [Suspect]
     Active Substance: NECITUMUMAB
     Dosage: 800 MG, OTHER
     Route: 042
  5. CISPLATIN. [Suspect]
     Active Substance: CISPLATIN
     Indication: SQUAMOUS CELL CARCINOMA OF LUNG
     Dosage: 60 MG/M2, OTHER
     Route: 042
     Dates: start: 20200115, end: 20200115
  6. CISPLATIN. [Suspect]
     Active Substance: CISPLATIN
     Dosage: 45 MG/M2, OTHER
     Route: 042
     Dates: start: 20200115, end: 20200204
  7. CISPLATIN. [Suspect]
     Active Substance: CISPLATIN
     Dosage: 45 MG/M2, OTHER
     Route: 042
  8. PORTRAZZA [Suspect]
     Active Substance: NECITUMUMAB
     Indication: SQUAMOUS CELL CARCINOMA OF LUNG
     Dosage: 800 MG, OTHER
     Route: 042
     Dates: start: 20200115, end: 20200122
  9. PORTRAZZA [Suspect]
     Active Substance: NECITUMUMAB
     Dosage: 800 MG, OTHER
     Route: 042
  10. MAGNESIUM SULFATE. [Concomitant]
     Active Substance: MAGNESIUM SULFATE
     Indication: ELECTROLYTE SUBSTITUTION THERAPY
     Dosage: UNK, UNKNOWN
     Route: 065
     Dates: start: 20200115
  11. PORTRAZZA [Suspect]
     Active Substance: NECITUMUMAB
     Dosage: 800 MG, OTHER
     Route: 042
     Dates: start: 20200204
  12. GEMCITABINE HYDROCHLORIDE. [Suspect]
     Active Substance: GEMCITABINE HYDROCHLORIDE
     Indication: SQUAMOUS CELL CARCINOMA OF LUNG
     Dosage: 1000 MG/M2, OTHER
     Route: 042
     Dates: start: 20200115, end: 20200122
  13. GEMCITABINE HYDROCHLORIDE. [Suspect]
     Active Substance: GEMCITABINE HYDROCHLORIDE
     Dosage: 750 MG/M2, OTHER
     Route: 042
  14. PORTRAZZA [Suspect]
     Active Substance: NECITUMUMAB
     Dosage: 800 MG, OTHER
     Route: 042
     Dates: start: 20200415, end: 20200415
  15. GEMCITABINE HYDROCHLORIDE. [Suspect]
     Active Substance: GEMCITABINE HYDROCHLORIDE
     Dosage: 750 MG/M2, OTHER
     Route: 042
     Dates: start: 20200115, end: 20200212

REACTIONS (3)
  - Pneumonia [Recovering/Resolving]
  - Skin fissures [Not Recovered/Not Resolved]
  - Platelet count decreased [Recovered/Resolved]

NARRATIVE: CASE EVENT DATE: 20200129
